FAERS Safety Report 9468188 (Version 1)
Quarter: 2013Q3

REPORT INFORMATION
  Report Type: Report from Study
  Country: US (occurrence: US)
  Receive Date: 20130821
  Receipt Date: 20130821
  Transmission Date: 20140515
  Serious: Yes (Hospitalization)
  Sender: FDA-Public Use
  Company Number: US-ABBOTT-13P-163-1134636-00

PATIENT
  Age: 40 Year
  Sex: Male
  Weight: 66.74 kg

DRUGS (6)
  1. MARINOL [Suspect]
     Indication: DECREASED APPETITE
     Dosage: 1 BEFORE LUNCH AND 1 BEFORE DINNER
     Dates: start: 201302
  2. NORVIR [Suspect]
     Indication: HIV INFECTION
  3. TRUVADA [Concomitant]
     Indication: HIV INFECTION
  4. PREZISTA [Concomitant]
     Indication: HIV INFECTION
  5. TOPAMAX [Concomitant]
     Indication: BIPOLAR DISORDER
  6. RESTORIL [Concomitant]
     Indication: INSOMNIA

REACTIONS (3)
  - Pneumonia legionella [Recovered/Resolved]
  - Pneumonia [Recovered/Resolved]
  - Influenza [Recovered/Resolved]
